FAERS Safety Report 8083439 (Version 6)
Quarter: 2013Q3

REPORT INFORMATION
  Report Type: Spontaneous
  Country: US (occurrence: US)
  Receive Date: 20110810
  Receipt Date: 20130805
  Transmission Date: 20140515
  Serious: Yes (Disabling)
  Sender: FDA-Public Use
  Company Number: US-PFIZER INC-2011179948

PATIENT
  Age: 82 Year
  Sex: Female
  Weight: 67.12 kg

DRUGS (17)
  1. TIKOSYN [Suspect]
     Indication: ATRIAL FIBRILLATION
     Dosage: 250 UG, TAKE ONE CAPSULE BY MOUTH TWICE A DAY
     Route: 048
     Dates: start: 20110619
  2. ASACOL [Suspect]
     Dosage: 800 MG, 1X/DAY
     Route: 048
  3. ASACOL [Suspect]
     Dosage: UNK
  4. AMLODIPINE [Concomitant]
     Indication: POSTOPERATIVE CARE
     Dosage: 5 MG, 2X/DAY
  5. AMLODIPINE [Concomitant]
     Indication: BLOOD PRESSURE ABNORMAL
  6. AMLODIPINE BESILATE [Concomitant]
     Dosage: 5 MG, 2X/DAY
     Route: 048
  7. ASPIRIN [Concomitant]
     Dosage: 325 MG, 1X/DAY
     Route: 048
  8. GARLIC [Concomitant]
     Dosage: 1 PO QD
     Route: 048
  9. FISH OIL [Concomitant]
     Dosage: 1000 MG, 3X/DAY
     Route: 048
  10. VITAMIN E [Concomitant]
     Dosage: 400 IU, 1X/DAY
  11. VITAMIN D [Concomitant]
     Dosage: 1000 IU, 1X/DAY
  12. VITAMIN B12 [Concomitant]
     Dosage: (2500 1 PO QD)
     Route: 048
  13. VITAMIN B6 [Concomitant]
     Dosage: 100 MG, 1X/DAY
     Route: 048
  14. OS-CAL D [Concomitant]
     Dosage: 500-500 MG-UNIT 2 BY MOUTH EVERY DAY
     Route: 048
  15. METOPROLOL TARTRATE [Concomitant]
     Dosage: 25 MG, 1X/DAY (50 MG, 1/2 TAB PO QD)
     Route: 048
  16. MAGNESIUM OXIDE [Concomitant]
     Dosage: 400 MG, 2X/DAY
     Route: 048
  17. VITAMIN C [Concomitant]
     Dosage: 500 MG, 1X/DAY
     Route: 048

REACTIONS (2)
  - Tremor [Not Recovered/Not Resolved]
  - Hearing impaired [Not Recovered/Not Resolved]
